FAERS Safety Report 21097126 (Version 2)
Quarter: 2022Q3

REPORT INFORMATION
  Report Type: Spontaneous
  Country: JP (occurrence: JP)
  Receive Date: 20220719
  Receipt Date: 20220725
  Transmission Date: 20221027
  Serious: Yes (Hospitalization, Other)
  Sender: FDA-Public Use
  Company Number: JP-SUN PHARMACEUTICAL INDUSTRIES LTD-2022R1-344638

PATIENT
  Age: 19 Year
  Sex: Female

DRUGS (1)
  1. BETAMETHASONE [Suspect]
     Active Substance: BETAMETHASONE
     Indication: Netherton^s syndrome
     Dosage: UNK
     Route: 061

REACTIONS (2)
  - Staphylococcal bacteraemia [Recovering/Resolving]
  - Secondary adrenocortical insufficiency [Recovering/Resolving]
